FAERS Safety Report 8311189-6 (Version None)
Quarter: 2012Q2

REPORT INFORMATION
  Report Type: 
  Country: None (occurrence: None)
  Receive Date: 20120425
  Receipt Date: 20110804
  Transmission Date: 20120825
  Serious: No
  Sender: FDA-Public Use
  Company Number: US-MYLANLABS-2011S1014578

PATIENT
  Age: 76 Year
  Sex: Female

DRUGS (7)
  1. VITAMIN D [Concomitant]
  2. PREMARIN [Concomitant]
  3. NITROFURANTOIN MONOHYDRATE/MACROCRYSTALS [Suspect]
     Indication: CYSTITIS
     Route: 048
     Dates: start: 20110623, end: 20110626
  4. CARDIZEM [Concomitant]
     Dosage: ALLERGIC TO GENERIC
  5. DITROPAN XL [Concomitant]
  6. ZOCOR [Concomitant]
  7. DIFLUCAN [Concomitant]

REACTIONS (4)
  - EYE HAEMORRHAGE [None]
  - ABDOMINAL DISCOMFORT [None]
  - HYPERSENSITIVITY [None]
  - DYSPNOEA [None]
